FAERS Safety Report 14709277 (Version 2)
Quarter: 2018Q2

REPORT INFORMATION
  Report Type: Spontaneous
  Country: US (occurrence: US)
  Receive Date: 20180403
  Receipt Date: 20180412
  Transmission Date: 20180711
  Serious: Yes (Other)
  Sender: FDA-Public Use
  Company Number: US-SA-2014SA122125

PATIENT
  Sex: Male

DRUGS (2)
  1. FLEXALL PAIN RELIEVING [Suspect]
     Active Substance: MENTHOL
     Indication: ANALGESIC THERAPY
     Route: 065
  2. FLEXALL PAIN RELIEVING [Suspect]
     Active Substance: MENTHOL
     Indication: ANALGESIC THERAPY
     Route: 065

REACTIONS (7)
  - Product quality issue [Unknown]
  - Back disorder [Unknown]
  - Wrist surgery [Unknown]
  - Feeling abnormal [Unknown]
  - Sinusitis [Unknown]
  - Nerve injury [Unknown]
  - Burning sensation [Recovered/Resolved]
